FAERS Safety Report 10833465 (Version 3)
Quarter: 2017Q1

REPORT INFORMATION
  Report Type: Spontaneous
  Country: US (occurrence: US)
  Receive Date: 20150219
  Receipt Date: 20170208
  Transmission Date: 20170428
  Serious: Yes (Other)
  Sender: FDA-Public Use
  Company Number: US-JNJFOC-20150214106

PATIENT

DRUGS (2)
  1. UBLITUXIMAB [Suspect]
     Active Substance: UBLITUXIMAB
     Indication: CHRONIC LYMPHOCYTIC LEUKAEMIA
     Dosage: ADMINISTERED ON DAYS 1, 8 AND 15 OF CYCLE 1 FOLLOWED BY DAY 1 OF CYCLES??2 TO 6.
  2. IBRUTINIB [Suspect]
     Active Substance: IBRUTINIB
     Indication: CHRONIC LYMPHOCYTIC LEUKAEMIA
     Route: 048

REACTIONS (26)
  - Thrombocytopenia [Unknown]
  - Oedema peripheral [Unknown]
  - Infusion related reaction [Unknown]
  - Abdominal pain [Unknown]
  - Chills [Unknown]
  - Contusion [Unknown]
  - Dizziness [Unknown]
  - Diarrhoea [Unknown]
  - Arthralgia [Unknown]
  - Anaemia [Unknown]
  - Upper respiratory tract infection [Unknown]
  - Insomnia [Unknown]
  - Hypercalcaemia [Unknown]
  - Rash [Unknown]
  - Stomatitis [Unknown]
  - Leukocytosis [Unknown]
  - Fatigue [Unknown]
  - Constipation [Unknown]
  - Headache [Unknown]
  - Neutropenia [Unknown]
  - Nausea [Unknown]
  - Muscle spasms [Unknown]
  - Dehydration [Unknown]
  - Cough [Unknown]
  - Pyrexia [Unknown]
  - Myalgia [Unknown]
